FAERS Safety Report 5851682-9 (Version None)
Quarter: 2008Q3

REPORT INFORMATION
  Report Type: 
  Country: None (occurrence: None)
  Receive Date: 20080820
  Receipt Date: 20080730
  Transmission Date: 20090109
  Serious: No
  Sender: FDA-Public Use
  Company Number: US-BOEHRINGER INGELHEIM GMBH, GERMANY-2008-BP-11962BP

PATIENT
  Age: 31 Year
  Sex: Female

DRUGS (2)
  1. MIRAPEX [Suspect]
     Indication: PERIODIC LIMB MOVEMENT DISORDER
     Route: 048
     Dates: start: 20080201
  2. LEXAPRO [Concomitant]
     Indication: MOOD SWINGS

REACTIONS (1)
  - WEIGHT INCREASED [None]
